FAERS Safety Report 5153226-6 (Version None)
Quarter: 2006Q4

REPORT INFORMATION
  Report Type: 
  Country: None (occurrence: None)
  Receive Date: 20061117
  Receipt Date: 20061109
  Transmission Date: 20070319
  Serious: Yes (Disabling)
  Sender: FDA-Public Use
  Company Number: 2006AP05356

PATIENT
  Age: 70 Year
  Sex: Female

DRUGS (4)
  1. NAROPIN [Suspect]
     Indication: SPINAL ANAESTHESIA
     Route: 037
     Dates: start: 20050601
  2. NAROPIN [Suspect]
     Indication: EPIDURAL ANAESTHESIA
     Route: 037
     Dates: start: 20050601
  3. NAROPIN [Suspect]
     Route: 008
     Dates: start: 20050601
  4. NAROPIN [Suspect]
     Route: 008
     Dates: start: 20050601

REACTIONS (1)
  - SPINAL CORD PARALYSIS [None]
